FAERS Safety Report 6770547-1 (Version None)
Quarter: 2010Q2

REPORT INFORMATION
  Report Type: 
  Country: None (occurrence: None)
  Receive Date: 20100615
  Receipt Date: 20100601
  Transmission Date: 20101027
  Serious: Yes (Other)
  Sender: FDA-Public Use
  Company Number: PHHY2010SK07199

PATIENT
  Sex: Male

DRUGS (3)
  1. GLEEVEC [Suspect]
     Indication: CHRONIC MYELOID LEUKAEMIA
     Dosage: 400 MG/ DAY
     Dates: start: 20050413, end: 20060629
  2. GLEEVEC [Suspect]
     Dosage: 600 MG/ DAY
     Dates: start: 20060629, end: 20070709
  3. GLEEVEC [Suspect]
     Dosage: 800 MG/ DAY
     Dates: start: 20070709, end: 20081101

REACTIONS (6)
  - DRUG INEFFECTIVE [None]
  - DRUG TOXICITY [None]
  - EYELID OEDEMA [None]
  - FLUID RETENTION [None]
  - GENERALISED OEDEMA [None]
  - WEIGHT INCREASED [None]
